FAERS Safety Report 7739353-5 (Version None)
Quarter: 2011Q3

REPORT INFORMATION
  Report Type: 
  Country: None (occurrence: None)
  Receive Date: 20110909
  Receipt Date: 20110831
  Transmission Date: 20111222
  Serious: Yes (Hospitalization, Other)
  Sender: FDA-Public Use
  Company Number: US-UCBSA-026772

PATIENT
  Sex: Female

DRUGS (3)
  1. TYLENOL-500 [Concomitant]
  2. CIMZIA [Suspect]
     Indication: CROHN'S DISEASE
     Route: 058
     Dates: start: 20090723
  3. BENADRYL [Concomitant]

REACTIONS (2)
  - OSTEOARTHRITIS [None]
  - CARPAL TUNNEL SYNDROME [None]
